FAERS Safety Report 8702553 (Version 2)
Quarter: 2012Q4

REPORT INFORMATION
  Report Type: Spontaneous
  Country: FR (occurrence: None)
  Receive Date: 20120719
  Receipt Date: 20120823
  Transmission Date: 20130627
  Serious: Yes (Hospitalization)
  Sender: FDA-Public Use
  Company Number: 2012CP000079

PATIENT
  Age: 55 Year
  Sex: Female

DRUGS (9)
  1. ACETAMINOPHEN [Suspect]
     Dosage: 1 GRAM; 4/1 DAY; IV
     Route: 042
     Dates: start: 20120515
  2. TRAMADOL HYDROCHLORIDE [Suspect]
     Route: 048
     Dates: start: 20120515
  3. LOVENOX [Suspect]
     Indication: PHLEBITIS
     Dosage: 1 DOSAGE FORM; 1/1 DAY; SC
     Route: 058
     Dates: start: 20120515
  4. PERINDOPRIL ERBUMINE [Suspect]
     Indication: HYPERTENSION
     Dosage: 10 MG; 1 DAY; PO
     Route: 048
     Dates: start: 20120601, end: 20120606
  5. NICARDIPINE HYDROCHLORIDE [Suspect]
     Indication: HYPERTENSION
     Dosage: 50 MG; 1/1 DAY; PO
     Route: 048
     Dates: start: 20120515
  6. LEVOCARNITINE [Suspect]
     Dosage: 1 GRAM; 4/1 DAY
     Dates: start: 20120531
  7. LEVOCARNITINE [Concomitant]
  8. PROPRANOLOL HYDROCHLORIDE [Concomitant]
  9. CRESTOR [Concomitant]

REACTIONS (2)
  - Coma [None]
  - Agranulocytosis [None]
